FAERS Safety Report 4662066-3 (Version None)
Quarter: 2005Q2

REPORT INFORMATION
  Report Type: 
  Country: None (occurrence: None)
  Receive Date: 20050512
  Receipt Date: 20050428
  Transmission Date: 20051028
  Serious: Yes (Other)
  Sender: FDA-Public Use
  Company Number: A-US2005-09577

PATIENT
  Age: 25 Year
  Sex: Female

DRUGS (8)
  1. TRACLEER [Suspect]
     Indication: PULMONARY HYPERTENSION
     Dosage: SEE IMAGE
     Route: 048
     Dates: start: 20050106, end: 20050201
  2. TRACLEER [Suspect]
     Indication: PULMONARY HYPERTENSION
     Dosage: SEE IMAGE
     Route: 048
     Dates: start: 20050201, end: 20050417
  3. OXYGEN (OXYGEN) [Concomitant]
  4. VIAGRA [Concomitant]
  5. COUMADIN [Concomitant]
  6. DESLORATADINE (DESLORATADINE) [Concomitant]
  7. SINGULAIR [Concomitant]
  8. MOTRIN (IBUPROFEN) [Concomitant]

REACTIONS (3)
  - DRUG EXPOSURE DURING PREGNANCY [None]
  - OXYGEN SATURATION DECREASED [None]
  - PREGNANCY [None]
